FAERS Safety Report 12331356 (Version 1)
Quarter: 2016Q2

REPORT INFORMATION
  Report Type: Spontaneous
  Country: US (occurrence: US)
  Receive Date: 20160504
  Receipt Date: 20160504
  Transmission Date: 20160815
  Serious: No
  Sender: FDA-Public Use
  Company Number: US-ENDO PHARMACEUTICALS INC.-2015-004386

PATIENT
  Sex: Female
  Weight: 59.02 kg

DRUGS (2)
  1. DIAZEPAM 5MG [Suspect]
     Active Substance: DIAZEPAM
     Indication: SLEEP DISORDER
  2. DIAZEPAM 5MG [Suspect]
     Active Substance: DIAZEPAM
     Indication: ANXIETY
     Route: 065

REACTIONS (2)
  - Off label use [Not Recovered/Not Resolved]
  - Intentional product misuse [Not Recovered/Not Resolved]

NARRATIVE: CASE EVENT DATE: 2015
